FAERS Safety Report 10252388 (Version 1)
Quarter: 2014Q2

REPORT INFORMATION
  Report Type: Spontaneous
  Country: PT (occurrence: None)
  Receive Date: 20140619
  Receipt Date: 20140619
  Transmission Date: 20141212
  Serious: Yes (Other)
  Sender: FDA-Public Use
  Company Number: NGX_02424_2014

PATIENT
  Sex: Female

DRUGS (1)
  1. QUTENZA [Suspect]
     Indication: PRODUCT USED FOR UNKNOWN INDICATION
     Dosage: ([PATCH, DF] TOPICAL)
     Route: 061
     Dates: start: 2013

REACTIONS (4)
  - Cough [None]
  - Dysphonia [None]
  - Dyspnoea [None]
  - Laryngeal oedema [None]
